FAERS Safety Report 9204046 (Version 1)
Quarter: 2013Q2

REPORT INFORMATION
  Report Type: Spontaneous
  Country: US (occurrence: US)
  Receive Date: 20130402
  Receipt Date: 20130402
  Transmission Date: 20140414
  Serious: Yes (Hospitalization)
  Sender: FDA-Public Use
  Company Number: PHEH2013US005423

PATIENT
  Age: 58 Year
  Sex: Female

DRUGS (11)
  1. GILENYA [Suspect]
     Indication: MULTIPLE SCLEROSIS
     Dosage: 0.5 MG, QD
     Route: 048
     Dates: start: 20130304, end: 20130304
  2. ZOLPIDEM TARTRATE [Concomitant]
     Dosage: 5 MG, QD
  3. FISH OIL [Concomitant]
  4. VITAMIN D3 [Concomitant]
     Dosage: 5000 IU, UNK
  5. CLARITIN [Concomitant]
     Indication: HYPERSENSITIVITY
     Dosage: 10 MG, QD
  6. FAMVIR                                  /NET/ [Concomitant]
     Dosage: 500 MG, 2 PER A WEEK
  7. VYTORIN [Concomitant]
     Dosage: 40 MG, UNK
  8. EFFEXOR [Concomitant]
     Indication: DEPRESSION
     Dosage: 75 MG, UNK
  9. BENAZEPRIL HCL [Concomitant]
     Dosage: 10 MG, UNK
  10. LEVOTHYROXINE SODIUM [Concomitant]
     Dosage: 0.1 MG, UNK
  11. CENTRUM SILVER [Concomitant]

REACTIONS (9)
  - Palpitations [Unknown]
  - Atrioventricular block first degree [Recovered/Resolved]
  - Electrocardiogram PR prolongation [Recovered/Resolved]
  - Dizziness [Unknown]
  - Blood pressure decreased [Unknown]
  - Neutrophil percentage increased [Unknown]
  - Blood urea nitrogen/creatinine ratio increased [Unknown]
  - Lymphocyte percentage decreased [Unknown]
  - Heart rate decreased [Unknown]
